FAERS Safety Report 11501724 (Version 1)
Quarter: 2015Q3

REPORT INFORMATION
  Report Type: Spontaneous
  Country: US (occurrence: US)
  Receive Date: 20150914
  Receipt Date: 20150914
  Transmission Date: 20151125
  Serious: Yes (Other)
  Sender: FDA-Public Use
  Company Number: US-TAKEDA-TPA2012A03487

PATIENT

DRUGS (6)
  1. ACTOS [Suspect]
     Active Substance: PIOGLITAZONE HYDROCHLORIDE
     Indication: TYPE 2 DIABETES MELLITUS
     Dosage: 15 MG, 45 MG
     Route: 048
     Dates: start: 200803, end: 201108
  2. PRANDIN                            /01393601/ [Concomitant]
     Dosage: 2 MG, UNK
     Dates: start: 201005
  3. NOVOLOG [Concomitant]
     Active Substance: INSULIN ASPART
     Indication: DIABETES MELLITUS
     Dosage: SLIDING SCALE
     Dates: start: 2013
  4. HUMALOG [Concomitant]
     Active Substance: INSULIN LISPRO
     Dosage: 95 IU, UNK
     Dates: start: 2013
  5. DIABETA                            /00145301/ [Concomitant]
     Dosage: 5 MG, UNK
     Dates: start: 200807, end: 201003
  6. METFORMIN [Concomitant]
     Active Substance: METFORMIN HYDROCHLORIDE
     Dosage: 1000 MG, UNK
     Dates: start: 200803, end: 201002

REACTIONS (1)
  - Bladder cancer stage III [Not Recovered/Not Resolved]

NARRATIVE: CASE EVENT DATE: 20090721
